FAERS Safety Report 12947426 (Version 2)
Quarter: 2016Q4

REPORT INFORMATION
  Report Type: Spontaneous
  Country: FR (occurrence: FR)
  Receive Date: 20161116
  Receipt Date: 20161122
  Transmission Date: 20170207
  Serious: Yes (Life-Threatening, Hospitalization)
  Sender: FDA-Public Use
  Company Number: FR-PFIZER INC-2016522836

PATIENT
  Age: 52 Year
  Sex: Male

DRUGS (7)
  1. ABILIFY [Suspect]
     Active Substance: ARIPIPRAZOLE
     Dosage: ONE BOX IN A SINGLE ADMINISTRATION
     Route: 048
     Dates: start: 20161022, end: 20161022
  2. TEMESTA [Suspect]
     Active Substance: LORAZEPAM
     Dosage: TABLET), ONE BOX IN A SINGLE ADMINISTRATION, LORAZEPAM (TEMESTA), 6
     Route: 048
     Dates: start: 20161022, end: 20161022
  3. EFFEXOR [Suspect]
     Active Substance: VENLAFAXINE HYDROCHLORIDE
     Dosage: 5 BOXES IN A SINGLE ADMINISTRATION
     Route: 048
     Dates: start: 20161022, end: 20161022
  4. CYMBALTA [Suspect]
     Active Substance: DULOXETINE HYDROCHLORIDE
     Dosage: UNK
     Route: 048
     Dates: start: 20161022, end: 20161022
  5. LAROXYL [Suspect]
     Active Substance: AMITRIPTYLINE
     Dosage: UNK
     Route: 048
  6. CYMBALTA [Suspect]
     Active Substance: DULOXETINE HYDROCHLORIDE
     Dosage: UNK
     Route: 048
  7. LAROXYL [Suspect]
     Active Substance: AMITRIPTYLINE
     Dosage: UNK
     Route: 048
     Dates: start: 20161022, end: 20161022

REACTIONS (5)
  - Cholinergic syndrome [Recovering/Resolving]
  - Shock [Recovered/Resolved]
  - Depressed level of consciousness [Recovered/Resolved]
  - Intentional overdose [Recovering/Resolving]
  - Suicide attempt [Recovering/Resolving]

NARRATIVE: CASE EVENT DATE: 20161022
